FAERS Safety Report 5494007-3 (Version None)
Quarter: 2007Q4

REPORT INFORMATION
  Report Type: 
  Country: None (occurrence: None)
  Receive Date: 20071019
  Receipt Date: 20071015
  Transmission Date: 20080405
  Serious: Yes (Hospitalization)
  Sender: FDA-Public Use
  Company Number: 163-20785-07080090

PATIENT
  Age: 71 Year
  Sex: Male

DRUGS (5)
  1. THALOMID [Suspect]
     Indication: MULTIPLE MYELOMA
     Dosage: 100 MG, 1 IN 1 D, ORAL; 100MG-200MG, 100MG X 7 DAYS THEN 200 MGX21 DAYS, ORAL
     Route: 048
     Dates: start: 20070601, end: 20070624
  2. THALOMID [Suspect]
     Indication: MULTIPLE MYELOMA
     Dosage: 100 MG, 1 IN 1 D, ORAL; 100MG-200MG, 100MG X 7 DAYS THEN 200 MGX21 DAYS, ORAL
     Route: 048
     Dates: start: 20070815, end: 20070911
  3. WARFARIN SODIUM [Concomitant]
  4. ASPIRIN [Concomitant]
  5. DECADRON [Concomitant]

REACTIONS (10)
  - CARDIAC DISORDER [None]
  - CARDIAC FAILURE CONGESTIVE [None]
  - CONFUSIONAL STATE [None]
  - DEHYDRATION [None]
  - DIABETES MELLITUS [None]
  - FLUID IMBALANCE [None]
  - HAEMOGLOBIN DECREASED [None]
  - INTERNATIONAL NORMALISED RATIO DECREASED [None]
  - RENAL FAILURE CHRONIC [None]
  - SOMNOLENCE [None]
